FAERS Safety Report 24463529 (Version 1)
Quarter: 2024Q4

REPORT INFORMATION
  Report Type: Report from Study
  Country: US (occurrence: US)
  Receive Date: 20241018
  Receipt Date: 20241018
  Transmission Date: 20250115
  Serious: No
  Sender: ROCHE
  Company Number: US-ROCHE-3147904

PATIENT
  Age: 51 Year
  Sex: Female
  Weight: 111.4 kg

DRUGS (44)
  1. XOLAIR [Suspect]
     Active Substance: OMALIZUMAB
     Indication: Asthma
     Dosage: LAST INJECTION DATE : 03/AUG/2022, ANTICIPATED DATE OF TREATMENT: 05/AUG/2022
     Route: 058
     Dates: start: 20210617
  2. XOLAIR [Suspect]
     Active Substance: OMALIZUMAB
  3. ADVAIR DISKUS [Concomitant]
     Active Substance: FLUTICASONE PROPIONATE\SALMETEROL XINAFOATE
  4. ALBUTEROL SULFATE [Concomitant]
     Active Substance: ALBUTEROL SULFATE
  5. ALLOPURINOL [Concomitant]
     Active Substance: ALLOPURINOL
  6. AMLODIPINE [Concomitant]
     Active Substance: AMLODIPINE BESYLATE
  7. ASPIRIN [Concomitant]
     Active Substance: ASPIRIN
  8. BUSPIRONE [Concomitant]
     Active Substance: BUSPIRONE HYDROCHLORIDE
  9. CALCITRIOL [Concomitant]
     Active Substance: CALCITRIOL
  10. CARVEDILOL [Concomitant]
     Active Substance: CARVEDILOL
  11. CLONIDINE [Concomitant]
     Active Substance: CLONIDINE
  12. COLESTIPOL [Concomitant]
     Active Substance: COLESTIPOL
  13. CREON [Concomitant]
     Active Substance: PANCRELIPASE AMYLASE\PANCRELIPASE LIPASE\PANCRELIPASE PROTEASE
  14. CYCLOBENZAPRINE [Concomitant]
     Active Substance: CYCLOBENZAPRINE
  15. DYMISTA [Concomitant]
     Active Substance: AZELASTINE HYDROCHLORIDE\FLUTICASONE PROPIONATE
  16. EPINEPHRINE [Concomitant]
     Active Substance: EPINEPHRINE
  17. ESTRACE [Concomitant]
     Active Substance: ESTRADIOL
  18. FENOFIBRATE [Concomitant]
     Active Substance: FENOFIBRATE
  19. FERROUS SULFATE [Concomitant]
     Active Substance: FERROUS SULFATE
  20. GLUCAGON [Concomitant]
     Active Substance: GLUCAGON
  21. HYDRALAZINE [Concomitant]
     Active Substance: HYDRALAZINE HYDROCHLORIDE
  22. HYDROXYZINE HYDROCHLORIDE [Concomitant]
     Active Substance: HYDROXYZINE HYDROCHLORIDE
  23. INSULIN GLARGINE [Concomitant]
     Active Substance: INSULIN GLARGINE
  24. IPRATROPIUM [Concomitant]
     Active Substance: IPRATROPIUM
  25. ISOSORBIDE MONONITRATE [Concomitant]
     Active Substance: ISOSORBIDE MONONITRATE
  26. LAMICTAL [Concomitant]
     Active Substance: LAMOTRIGINE
  27. LANTUS SOLOSTAR [Concomitant]
     Active Substance: INSULIN GLARGINE
  28. LEVOTHYROXINE [Concomitant]
     Active Substance: LEVOTHYROXINE
  29. LIDOCAINE [Concomitant]
     Active Substance: LIDOCAINE
  30. LISINOPRIL [Concomitant]
     Active Substance: LISINOPRIL
  31. LORATADINE [Concomitant]
     Active Substance: LORATADINE
  32. LYRICA [Concomitant]
     Active Substance: PREGABALIN
  33. MAGNESIUM OXIDE [Concomitant]
     Active Substance: MAGNESIUM OXIDE
  34. MONTELUKAST [Concomitant]
     Active Substance: MONTELUKAST
  35. NYSTOP [Concomitant]
     Active Substance: NYSTATIN
  36. OXYBUTYNIN CHLORIDE [Concomitant]
     Active Substance: OXYBUTYNIN CHLORIDE
  37. PANTOPRAZOLE [Concomitant]
     Active Substance: PANTOPRAZOLE
  38. PAROXETINE [Concomitant]
     Active Substance: PAROXETINE
  39. POTASSIUM CHLORIDE [Concomitant]
     Active Substance: POTASSIUM CHLORIDE
  40. PROVENTIL HFA [Concomitant]
     Active Substance: ALBUTEROL SULFATE
  41. RESTASIS [Concomitant]
     Active Substance: CYCLOSPORINE
  42. ROPINIROLE [Concomitant]
     Active Substance: ROPINIROLE
  43. TRAZODONE [Concomitant]
     Active Substance: TRAZODONE HYDROCHLORIDE
  44. ZOLPIDEM [Concomitant]
     Active Substance: ZOLPIDEM TARTRATE

REACTIONS (23)
  - Off label use [Unknown]
  - Goitre [Unknown]
  - Vitamin D deficiency [Unknown]
  - Hyperlipidaemia [Unknown]
  - Obesity [Unknown]
  - Anxiety [Unknown]
  - Myopia [Unknown]
  - Haemorrhoids [Unknown]
  - Alopecia [Unknown]
  - Upper respiratory tract infection [Unknown]
  - Sialoadenitis [Unknown]
  - Congenital skin disorder [Unknown]
  - Lymphadenopathy [Unknown]
  - Cellulitis [Unknown]
  - Mass [Unknown]
  - Chest pain [Unknown]
  - Nausea [Unknown]
  - Vomiting [Unknown]
  - Diarrhoea [Unknown]
  - COVID-19 [Unknown]
  - Migraine [Unknown]
  - Swelling [Unknown]
  - Neck mass [Unknown]
